FAERS Safety Report 11719910 (Version 3)
Quarter: 2016Q1

REPORT INFORMATION
  Report Type: Spontaneous
  Country: IT (occurrence: IT)
  Receive Date: 20151110
  Receipt Date: 20160122
  Transmission Date: 20160525
  Serious: Yes (Hospitalization)
  Sender: FDA-Public Use
  Company Number: IT-ROCHE-1655719

PATIENT
  Age: 82 Year
  Sex: Female

DRUGS (8)
  1. PEPTAZOL (ITALY) [Concomitant]
     Route: 048
  2. ROACTEMRA [Suspect]
     Active Substance: TOCILIZUMAB
     Route: 042
     Dates: start: 20150723
  3. ROACTEMRA [Suspect]
     Active Substance: TOCILIZUMAB
     Indication: VASCULITIS NECROTISING
     Dosage: CONCENTRATE FOR SOLUTION FOR INTRAVENOUS INFUSION
     Route: 042
     Dates: start: 20150625
  4. CARBAMAZEPINE. [Concomitant]
     Active Substance: CARBAMAZEPINE
     Route: 065
  5. ROACTEMRA [Suspect]
     Active Substance: TOCILIZUMAB
     Route: 042
     Dates: start: 20150828
  6. METHOTREXATE [Concomitant]
     Active Substance: METHOTREXATE
     Route: 030
  7. ASCRIPTIN [Concomitant]
     Active Substance: ASPIRIN
     Dosage: ASCRIPTIN TABLETS, 20 SCORED TABLETS
     Route: 048
  8. ROACTEMRA [Suspect]
     Active Substance: TOCILIZUMAB
     Route: 042
     Dates: end: 20150930

REACTIONS (3)
  - Pancytopenia [Recovering/Resolving]
  - Pneumonia [Recovering/Resolving]
  - Acute respiratory failure [Recovering/Resolving]

NARRATIVE: CASE EVENT DATE: 20151019
